FAERS Safety Report 6506630-5 (Version None)
Quarter: 2009Q4

REPORT INFORMATION
  Report Type: 
  Country: None (occurrence: None)
  Receive Date: 20091217
  Receipt Date: 20091217
  Transmission Date: 20100525
  Serious: No
  Sender: FDA-Public Use
  Company Number: None

PATIENT

DRUGS (1)
  1. ALLERGIN-REFRESH ARTIFICAL TEARS [Suspect]
     Dosage: 1 FLUID OUNCES
     Dates: end: 20091022

REACTIONS (2)
  - PRODUCT CONTAMINATION MICROBIAL [None]
  - PRODUCT QUALITY ISSUE [None]
